FAERS Safety Report 7920284-2 (Version None)
Quarter: 2011Q4

REPORT INFORMATION
  Report Type: 
  Country: None (occurrence: None)
  Receive Date: 20111115
  Receipt Date: 20111107
  Transmission Date: 20120403
  Serious: Yes (Hospitalization)
  Sender: FDA-Public Use
  Company Number: 2011MA016240

PATIENT
  Age: 84 Year
  Sex: Female

DRUGS (5)
  1. CITALOPRAM HYDROBROMIDE [Suspect]
     Indication: DEPRESSION
     Dosage: 20 MG;QD;PO
     Route: 048
     Dates: end: 20110221
  2. GLYCERYL TRINITRATE [Concomitant]
  3. SIMVASTATIN [Concomitant]
  4. ASPIRIN [Suspect]
     Indication: PROPHYLAXIS
     Dosage: 75 MG;QD;PO
     Route: 048
     Dates: end: 20110221
  5. ACETAMINOPHEN [Concomitant]

REACTIONS (2)
  - DUODENAL ULCER [None]
  - UPPER GASTROINTESTINAL HAEMORRHAGE [None]
